FAERS Safety Report 14590039 (Version 1)
Quarter: 2018Q1

REPORT INFORMATION
  Report Type: Spontaneous
  Country: US (occurrence: US)
  Receive Date: 20180302
  Receipt Date: 20180302
  Transmission Date: 20180509
  Serious: Yes (Hospitalization, Other)
  Sender: FDA-Public Use
  Company Number: US-BIOGEN-2018BI00533754

PATIENT
  Sex: Female

DRUGS (3)
  1. TYSABRI [Suspect]
     Active Substance: NATALIZUMAB
     Route: 065
     Dates: start: 20080708, end: 20080804
  2. TYSABRI [Suspect]
     Active Substance: NATALIZUMAB
     Route: 065
     Dates: end: 20140522
  3. TYSABRI [Suspect]
     Active Substance: NATALIZUMAB
     Indication: MULTIPLE SCLEROSIS
     Route: 065
     Dates: start: 20061211, end: 20070501

REACTIONS (4)
  - Diabetic coma [Recovered/Resolved]
  - Pain [Recovered/Resolved]
  - Diabetes mellitus [Not Recovered/Not Resolved]
  - Loss of control of legs [Not Recovered/Not Resolved]

NARRATIVE: CASE EVENT DATE: 2014
